FAERS Safety Report 20627882 (Version 1)
Quarter: 2022Q1

REPORT INFORMATION
  Report Type: Report from Study
  Country: US (occurrence: US)
  Receive Date: 20220323
  Receipt Date: 20220323
  Transmission Date: 20220423
  Serious: Yes (Other)
  Sender: FDA-Public Use
  Company Number: US-GLAXOSMITHKLINE-US2021AMR219287

PATIENT
  Sex: Male

DRUGS (1)
  1. BELANTAMAB MAFODOTIN [Suspect]
     Active Substance: BELANTAMAB MAFODOTIN
     Indication: Plasma cell myeloma
     Dosage: UNK
     Dates: start: 20210901, end: 20211021

REACTIONS (6)
  - Hallucination [Unknown]
  - Keratopathy [Unknown]
  - Visual acuity reduced [Unknown]
  - Eye injury [Not Recovered/Not Resolved]
  - Eye disorder [Unknown]
  - Mental status changes [Unknown]
